FAERS Safety Report 14929622 (Version 2)
Quarter: 2018Q2

REPORT INFORMATION
  Report Type: Spontaneous
  Country: CH (occurrence: CH)
  Receive Date: 20180523
  Receipt Date: 20180527
  Transmission Date: 20180711
  Serious: Yes (Other)
  Sender: FDA-Public Use
  Company Number: PHHY2018CH004279

PATIENT
  Sex: Female

DRUGS (1)
  1. GILENYA [Suspect]
     Active Substance: FINGOLIMOD HYDROCHLORIDE
     Indication: PRODUCT USED FOR UNKNOWN INDICATION
     Dosage: 0.5 MG, UNK
     Route: 065
     Dates: start: 201802

REACTIONS (7)
  - Granulocyte count decreased [Unknown]
  - Anaemia [Unknown]
  - Lymphocyte count decreased [Unknown]
  - White blood cell count decreased [Unknown]
  - C-reactive protein increased [Recovered/Resolved]
  - Platelet count decreased [Unknown]
  - Lymphocyte percentage decreased [Unknown]

NARRATIVE: CASE EVENT DATE: 20180309
